FAERS Safety Report 9646450 (Version 1)
Quarter: 2013Q4

REPORT INFORMATION
  Report Type: Spontaneous
  Country: IT (occurrence: IT)
  Receive Date: 20131025
  Receipt Date: 20131025
  Transmission Date: 20140711
  Serious: Yes (Hospitalization)
  Sender: FDA-Public Use
  Company Number: PHHY2013IT118114

PATIENT
  Age: 69 Year
  Sex: Male

DRUGS (2)
  1. KETOPROFEN [Suspect]
     Indication: NECK PAIN
     Dosage: UNK UKN, UNK
     Route: 048
     Dates: start: 20130806, end: 20130807
  2. PANTORC [Concomitant]
     Indication: GASTROOESOPHAGEAL REFLUX DISEASE
     Dosage: UNK UKN, UNK

REACTIONS (4)
  - Syncope [Recovering/Resolving]
  - Gastrointestinal haemorrhage [Recovering/Resolving]
  - Melaena [Recovering/Resolving]
  - Haematemesis [Recovering/Resolving]
